FAERS Safety Report 9501274 (Version 1)
Quarter: 2013Q1

REPORT INFORMATION
  Report Type: Spontaneous
  Country: US (occurrence: None)
  Receive Date: 20130118
  Receipt Date: 20130118
  Transmission Date: 20140127
  Serious: Yes (Hospitalization)
  Sender: FDA-Public Use
  Company Number: A-US2012-65415

PATIENT
  Age: 44 Year
  Sex: Female
  Weight: 68.2 kg

DRUGS (5)
  1. TRACLEER [Suspect]
     Indication: PULMONARY ARTERIAL HYPERTENSION
     Route: 048
  2. REMODULIN [Suspect]
     Dosage: 44.8 NG/KG, PER MIN, SC
     Route: 058
     Dates: start: 200808
  3. REVATIO [Suspect]
  4. COUMADIN (WARFARIN SODIUM) [Concomitant]
  5. DIURETICS [Concomitant]

REACTIONS (2)
  - Pneumonia [None]
  - Pyrexia [None]
